FAERS Safety Report 17583061 (Version 2)
Quarter: 2020Q1

REPORT INFORMATION
  Report Type: Spontaneous
  Country: GB (occurrence: GB)
  Receive Date: 20200325
  Receipt Date: 20200331
  Transmission Date: 20200409
  Serious: Yes (Other)
  Sender: FDA-Public Use
  Company Number: GB-AUROBINDO-AUR-APL-2020-013895

PATIENT
  Sex: Female

DRUGS (2)
  1. PERINDOPRIL 8 MG TABLETS [Suspect]
     Active Substance: PERINDOPRIL
     Indication: BLOOD PRESSURE MEASUREMENT
     Dosage: 8 MILLIGRAM, DAILY
     Route: 048
  2. PERINDOPRIL 4 MG TABLETS [Suspect]
     Active Substance: PERINDOPRIL
     Indication: BLOOD PRESSURE MEASUREMENT
     Dosage: 4 MILLIGRAM, DAILY
     Route: 048

REACTIONS (3)
  - Hypertension [Recovering/Resolving]
  - Product substitution issue [Unknown]
  - Drug ineffective [Unknown]
